FAERS Safety Report 4901881-5 (Version None)
Quarter: 2006Q1

REPORT INFORMATION
  Report Type: 
  Country: None (occurrence: None)
  Receive Date: 20060203
  Receipt Date: 20060203
  Transmission Date: 20060701
  Serious: No
  Sender: FDA-Public Use
  Company Number: None

PATIENT
  Age: 51 Year
  Sex: Female
  Weight: 58.9676 kg

DRUGS (2)
  1. RANITIDINE [Suspect]
     Indication: IRRITABLE BOWEL SYNDROME
     Dosage: 150 MG BID PO
     Route: 048
  2. RANITIDINE [Suspect]
     Indication: REFLUX GASTRITIS
     Dosage: 150 MG BID PO
     Route: 048

REACTIONS (2)
  - MEDICATION ERROR [None]
  - PHARMACEUTICAL PRODUCT COMPLAINT [None]
